FAERS Safety Report 7038531-0 (Version None)
Quarter: 2010Q4

REPORT INFORMATION
  Report Type: 
  Country: None (occurrence: None)
  Receive Date: 20101011
  Receipt Date: 20100329
  Transmission Date: 20110411
  Serious: Yes (Other)
  Sender: FDA-Public Use
  Company Number: US-PFIZER INC-2010040614

PATIENT
  Sex: Female
  Weight: 58.957 kg

DRUGS (3)
  1. NEURONTIN [Suspect]
     Indication: BIPOLAR DISORDER
     Dosage: 300 MG, 2X/DAY
     Route: 048
     Dates: start: 20100201
  2. XANAX [Concomitant]
     Dosage: UNK
  3. NEXIUM [Concomitant]
     Dosage: UNK

REACTIONS (5)
  - ANXIETY [None]
  - DEPERSONALISATION [None]
  - FEELING ABNORMAL [None]
  - MEMORY IMPAIRMENT [None]
  - THINKING ABNORMAL [None]
